FAERS Safety Report 8643115 (Version 3)
Quarter: 2012Q4

REPORT INFORMATION
  Report Type: 
  Country: US (occurrence: US)
  Receive Date: 20120629
  Receipt Date: 20120927
  Transmission Date: 20130627
  Serious: No
  Sender: FDA-Public Use
  Company Number: US-ASTRAZENECA-2012SE40813

PATIENT
  Age: 8 Year
  Sex: Female

DRUGS (1)
  1. CRESTOR [Suspect]
     Indication: LIPIDS INCREASED
     Route: 048

REACTIONS (2)
  - Precocious puberty [Unknown]
  - Off label use [Unknown]
